FAERS Safety Report 7743321-7 (Version None)
Quarter: 2011Q3

REPORT INFORMATION
  Report Type: 
  Country: None (occurrence: None)
  Receive Date: 20110902
  Receipt Date: 20110822
  Transmission Date: 20111222
  Serious: Yes (Other)
  Sender: FDA-Public Use
  Company Number: B0743228A

PATIENT
  Age: 52 Year
  Sex: Male

DRUGS (4)
  1. TRUVADA [Suspect]
  2. DARUNAVIR ETHANOLATE [Suspect]
  3. ZOVIRAX [Suspect]
  4. RITONAVIR [Suspect]

REACTIONS (5)
  - UVEITIS [None]
  - RETINAL SCAR [None]
  - IMMUNE RECONSTITUTION SYNDROME [None]
  - VITREOUS DISORDER [None]
  - CYSTOID MACULAR OEDEMA [None]
